FAERS Safety Report 12382676 (Version 1)
Quarter: 2016Q2

REPORT INFORMATION
  Report Type: Spontaneous
  Country: US (occurrence: US)
  Receive Date: 20160518
  Receipt Date: 20160518
  Transmission Date: 20160815
  Serious: No
  Sender: FDA-Public Use
  Company Number: US-MALLINCKRODT-T201601485

PATIENT
  Age: 65 Year
  Sex: Female
  Weight: 61 kg

DRUGS (7)
  1. METOPROLOL. [Concomitant]
     Active Substance: METOPROLOL
  2. GLUCOSAMINE [Concomitant]
     Active Substance: GLUCOSAMINE
  3. VITAMIN D [Concomitant]
     Active Substance: CHOLECALCIFEROL
  4. H.P. ACTHAR [Suspect]
     Active Substance: CORTICOTROPIN
     Indication: MULTIPLE SCLEROSIS
     Dosage: 80 UNITS ONCE DAILY FOR 5 DAYS
     Route: 065
     Dates: start: 20160328, end: 20160401
  5. MULTIVITAMINES AND MINERALS [Concomitant]
  6. XARELTO [Concomitant]
     Active Substance: RIVAROXABAN
  7. KLOR-CON [Concomitant]
     Active Substance: POTASSIUM CHLORIDE

REACTIONS (4)
  - Swollen tongue [Recovered/Resolved]
  - Blood pressure increased [Not Recovered/Not Resolved]
  - Dyspnoea [Recovered/Resolved]
  - Lip swelling [Recovered/Resolved]

NARRATIVE: CASE EVENT DATE: 20160402
